FAERS Safety Report 13220408 (Version 2)
Quarter: 2017Q2

REPORT INFORMATION
  Report Type: Spontaneous
  Country: FR (occurrence: FR)
  Receive Date: 20170210
  Receipt Date: 20170613
  Transmission Date: 20170830
  Serious: Yes (Hospitalization, Other)
  Sender: FDA-Public Use
  Company Number: FR-009507513-1702FRA002695

PATIENT
  Age: 86 Year
  Sex: Female
  Weight: 65 kg

DRUGS (13)
  1. ROCALTROL [Concomitant]
     Active Substance: CALCITRIOL
     Dosage: UNK, AT THE MORNING
     Route: 048
  2. SERESTA [Concomitant]
     Active Substance: OXAZEPAM
     Dosage: .5 DF, QD/AT BEDTIME
     Route: 048
  3. LEVOTHYROX [Concomitant]
     Active Substance: LEVOTHYROXINE
     Dosage: 100 MICROGRAM, QD/AT THE MORNING
     Route: 048
  4. PANTOPRAZOLE [Concomitant]
     Active Substance: PANTOPRAZOLE
     Dosage: 20 MG, QD/AT THE EVENING
     Route: 048
  5. EZETROL [Suspect]
     Active Substance: EZETIMIBE
     Indication: PRODUCT USED FOR UNKNOWN INDICATION
     Dosage: 1 DF, QD/AT THE EVENING
     Route: 048
  6. MOVICOL [Concomitant]
     Active Substance: POLYETHYLENE GLYCOL 3350\POTASSIUM CHLORIDE\SODIUM BICARBONATE\SODIUM CHLORIDE
     Dosage: UNK, IF NEEDED
  7. LERCANIDIPINE [Concomitant]
     Active Substance: LERCANIDIPINE
     Dosage: 10 MG, QD/AT THE EVENING
     Route: 048
  8. PREVISCAN [Suspect]
     Active Substance: FLUINDIONE
     Indication: THROMBOSIS
     Dosage: UNK
     Route: 048
     Dates: start: 201611, end: 20170120
  9. NORSET [Concomitant]
     Active Substance: MIRTAZAPINE
     Dosage: 15 MG, QD/AT THE EVENING
     Route: 048
  10. ZOPICLONE [Concomitant]
     Active Substance: ZOPICLONE
     Dosage: 7.5 MG, QD/AT THE EVENING
     Route: 048
  11. CALCIDOSE [Concomitant]
     Active Substance: CALCIUM CARBONATE
     Dosage: 1 DF, 2 DAYS/AT THE MORNING AND THE EVENING
     Route: 048
  12. BIPRETERAX (INDAPAMIDE (+) PERINDOPRIL ARGININE) [Concomitant]
     Active Substance: INDAPAMIDE\PERINDOPRIL ARGININE
     Dosage: 1 DF, QD/AT THE MORNING
     Route: 048
  13. DIFFU-K [Concomitant]
     Active Substance: POTASSIUM CHLORIDE
     Dosage: 1 DF, 2 DAYS
     Route: 048

REACTIONS (3)
  - Hepatocellular injury [Recovered/Resolved]
  - Abdominal pain [Recovering/Resolving]
  - Cholestasis [Recovered/Resolved]

NARRATIVE: CASE EVENT DATE: 20170120
